FAERS Safety Report 4297235-8 (Version None)
Quarter: 2004Q1

REPORT INFORMATION
  Report Type: 
  Country: None (occurrence: None)
  Receive Date: 20040217
  Receipt Date: 20040217
  Transmission Date: 20041129
  Serious: Yes (Other)
  Sender: FDA-Public Use
  Company Number: None

PATIENT
  Age: 90 Year
  Sex: Male

DRUGS (2)
  1. SYNTHROID [Suspect]
     Dosage: TABLET
  2. SYMMETREL [Suspect]
     Dosage: CAPS

REACTIONS (1)
  - MEDICATION ERROR [None]
